FAERS Safety Report 5709994-5 (Version None)
Quarter: 2008Q2

REPORT INFORMATION
  Report Type: 
  Country: None (occurrence: None)
  Receive Date: 20080418
  Receipt Date: 20070730
  Transmission Date: 20081010
  Serious: No
  Sender: FDA-Public Use
  Company Number: US-ASTRAZENECA-2007UW18342

PATIENT
  Age: 44 Year
  Sex: Female

DRUGS (6)
  1. TOPROL-XL [Suspect]
     Route: 048
     Dates: start: 20060101, end: 20070101
  2. TOPROL-XL [Suspect]
     Route: 048
     Dates: start: 20070101
  3. ASPIRIN [Concomitant]
  4. ZETIA [Concomitant]
  5. CRESTOR [Concomitant]
  6. PLAVIX [Concomitant]

REACTIONS (1)
  - WEIGHT INCREASED [None]
